FAERS Safety Report 4832657-5 (Version None)
Quarter: 2005Q4

REPORT INFORMATION
  Report Type: 
  Country: None (occurrence: None)
  Receive Date: 20051117
  Receipt Date: 20051108
  Transmission Date: 20060501
  Serious: Yes (Death)
  Sender: FDA-Public Use
  Company Number: USA-2005-0021645

PATIENT
  Age: 59 Year
  Sex: Male
  Weight: 68 kg

DRUGS (9)
  1. OXYCONTIN [Suspect]
     Indication: CANCER PAIN
     Dosage: SEE IMAGE
     Route: 048
     Dates: start: 20050606, end: 20050101
  2. OXYCONTIN [Suspect]
     Indication: CANCER PAIN
     Dosage: SEE IMAGE
     Route: 048
     Dates: start: 20000608
  3. OXYCODONE HCL IR CAPSULE (OXYCODONE HYDROCHLORIDE) IR CAPSULE [Suspect]
     Indication: PAIN
     Dosage: 5 MG, PRN,
  4. ACTIQ [Suspect]
     Indication: PAIN
     Dosage: 400 MCG, Q6H
     Dates: start: 20040420, end: 20050101
  5. OXYCODONE HCL [Concomitant]
  6. XANAX [Concomitant]
  7. DOXEPIN (DOXEPIN) [Concomitant]
  8. NEXIUM [Concomitant]
  9. NORVASC [Concomitant]

REACTIONS (5)
  - LUNG NEOPLASM MALIGNANT [None]
  - MALIGNANT NEOPLASM PROGRESSION [None]
  - METASTASES TO BONE [None]
  - METASTASES TO LIVER [None]
  - METASTASES TO MUSCLE [None]
